FAERS Safety Report 8267105-9 (Version None)
Quarter: 2012Q2

REPORT INFORMATION
  Report Type: 
  Country: None (occurrence: None)
  Receive Date: 20120409
  Receipt Date: 20120327
  Transmission Date: 20120825
  Serious: Yes (Hospitalization, Other)
  Sender: FDA-Public Use
  Company Number: US-JNJFOC-20120313658

PATIENT
  Sex: Female
  Weight: 92.08 kg

DRUGS (10)
  1. PRAVASTATIN [Concomitant]
     Indication: BLOOD CHOLESTEROL
     Route: 048
     Dates: start: 20111001
  2. HYDROCHLOROTHIAZIDE [Concomitant]
     Indication: BLOOD PRESSURE
     Route: 048
     Dates: start: 20010101
  3. CYMBALTA [Concomitant]
     Indication: DEPRESSION
     Route: 048
     Dates: start: 20100101
  4. FOLIC ACID [Concomitant]
     Indication: RHEUMATOID ARTHRITIS
     Route: 048
     Dates: start: 20000101
  5. METHOTREXATE [Concomitant]
     Indication: RHEUMATOID ARTHRITIS
     Route: 048
     Dates: start: 20000101
  6. LORCET-HD [Concomitant]
     Indication: PAIN
     Dosage: 10/650 UNITS UNSPECIFIED
     Route: 048
     Dates: start: 20010101
  7. METFORMIN HCL [Concomitant]
     Indication: DIABETES MELLITUS
     Route: 048
     Dates: start: 20080101
  8. CLONAZEPAM [Concomitant]
     Indication: SLEEP DISORDER
     Route: 048
     Dates: start: 20010101
  9. REMICADE [Suspect]
     Indication: RHEUMATOID ARTHRITIS
     Route: 042
     Dates: start: 20100405
  10. CYMBALTA [Concomitant]
     Indication: FIBROMYALGIA
     Route: 048
     Dates: start: 20100101

REACTIONS (8)
  - WEIGHT LOSS POOR [None]
  - HYPERHIDROSIS [None]
  - THYROID NEOPLASM [None]
  - ABDOMINAL DISTENSION [None]
  - SLUGGISHNESS [None]
  - JOINT STIFFNESS [None]
  - KNEE ARTHROPLASTY [None]
  - WEIGHT FLUCTUATION [None]
